FAERS Safety Report 25551251 (Version 1)
Quarter: 2025Q3

REPORT INFORMATION
  Report Type: Spontaneous
  Country: CA (occurrence: CA)
  Receive Date: 20250714
  Receipt Date: 20250714
  Transmission Date: 20251021
  Serious: Yes (Hospitalization)
  Sender: MYLAN
  Company Number: CA-MYLANLABS-2025M1057880

PATIENT
  Age: 75 Year
  Sex: Female

DRUGS (36)
  1. PHENYTOIN [Suspect]
     Active Substance: PHENYTOIN
     Indication: Product used for unknown indication
  2. PHENYTOIN [Suspect]
     Active Substance: PHENYTOIN
     Route: 065
  3. PHENYTOIN [Suspect]
     Active Substance: PHENYTOIN
     Route: 065
  4. PHENYTOIN [Suspect]
     Active Substance: PHENYTOIN
  5. XCOPRI [Suspect]
     Active Substance: CENOBAMATE
     Indication: Epilepsy
     Dosage: 100 MILLIGRAM, QD (1 EVERY 1 DAYS)
  6. XCOPRI [Suspect]
     Active Substance: CENOBAMATE
     Dosage: 100 MILLIGRAM, QD (1 EVERY 1 DAYS)
  7. XCOPRI [Suspect]
     Active Substance: CENOBAMATE
     Dosage: 100 MILLIGRAM, QD (1 EVERY 1 DAYS)
     Route: 048
  8. XCOPRI [Suspect]
     Active Substance: CENOBAMATE
     Dosage: 100 MILLIGRAM, QD (1 EVERY 1 DAYS)
     Route: 048
  9. XCOPRI [Suspect]
     Active Substance: CENOBAMATE
     Dosage: 50 MILLIGRAM, QD (1 EVERY 1 DAYS)
  10. XCOPRI [Suspect]
     Active Substance: CENOBAMATE
     Dosage: 50 MILLIGRAM, QD (1 EVERY 1 DAYS)
  11. XCOPRI [Suspect]
     Active Substance: CENOBAMATE
     Dosage: 50 MILLIGRAM, QD (1 EVERY 1 DAYS)
     Route: 048
  12. XCOPRI [Suspect]
     Active Substance: CENOBAMATE
     Dosage: 50 MILLIGRAM, QD (1 EVERY 1 DAYS)
     Route: 048
  13. XCOPRI [Suspect]
     Active Substance: CENOBAMATE
  14. XCOPRI [Suspect]
     Active Substance: CENOBAMATE
     Route: 065
  15. XCOPRI [Suspect]
     Active Substance: CENOBAMATE
  16. XCOPRI [Suspect]
     Active Substance: CENOBAMATE
     Route: 065
  17. CHOLECALCIFEROL [Concomitant]
     Active Substance: CHOLECALCIFEROL
  18. CHOLECALCIFEROL [Concomitant]
     Active Substance: CHOLECALCIFEROL
     Route: 065
  19. CHOLECALCIFEROL [Concomitant]
     Active Substance: CHOLECALCIFEROL
     Route: 065
  20. CHOLECALCIFEROL [Concomitant]
     Active Substance: CHOLECALCIFEROL
  21. GABAPENTIN [Concomitant]
     Active Substance: GABAPENTIN
  22. GABAPENTIN [Concomitant]
     Active Substance: GABAPENTIN
     Route: 065
  23. GABAPENTIN [Concomitant]
     Active Substance: GABAPENTIN
     Route: 065
  24. GABAPENTIN [Concomitant]
     Active Substance: GABAPENTIN
  25. KEPPRA [Concomitant]
     Active Substance: LEVETIRACETAM
  26. KEPPRA [Concomitant]
     Active Substance: LEVETIRACETAM
     Route: 065
  27. KEPPRA [Concomitant]
     Active Substance: LEVETIRACETAM
     Route: 065
  28. KEPPRA [Concomitant]
     Active Substance: LEVETIRACETAM
  29. LACOSAMIDE [Concomitant]
     Active Substance: LACOSAMIDE
  30. LACOSAMIDE [Concomitant]
     Active Substance: LACOSAMIDE
     Route: 065
  31. LACOSAMIDE [Concomitant]
     Active Substance: LACOSAMIDE
     Route: 065
  32. LACOSAMIDE [Concomitant]
     Active Substance: LACOSAMIDE
  33. PROPRANOLOL HYDROCHLORIDE [Concomitant]
     Active Substance: PROPRANOLOL HYDROCHLORIDE
  34. PROPRANOLOL HYDROCHLORIDE [Concomitant]
     Active Substance: PROPRANOLOL HYDROCHLORIDE
     Route: 065
  35. PROPRANOLOL HYDROCHLORIDE [Concomitant]
     Active Substance: PROPRANOLOL HYDROCHLORIDE
     Route: 065
  36. PROPRANOLOL HYDROCHLORIDE [Concomitant]
     Active Substance: PROPRANOLOL HYDROCHLORIDE

REACTIONS (4)
  - Seizure [Unknown]
  - Fall [Unknown]
  - Hip fracture [Unknown]
  - Product dose omission issue [Unknown]
